FAERS Safety Report 14220694 (Version 3)
Quarter: 2017Q4

REPORT INFORMATION
  Report Type: Report from Study
  Country: MX (occurrence: MX)
  Receive Date: 20171124
  Receipt Date: 20171221
  Transmission Date: 20180321
  Serious: Yes (Hospitalization)
  Sender: FDA-Public Use
  Company Number: PHHY2017MX171540

PATIENT
  Age: 83 Year
  Sex: Male

DRUGS (7)
  1. EXELON PATCH [Suspect]
     Active Substance: RIVASTIGMINE
     Indication: DEMENTIA ALZHEIMER^S TYPE
     Dosage: 13.3 MG, QD (PATCH 15 CM2)
     Route: 062
     Dates: start: 201710
  2. PEMIX [Concomitant]
     Indication: PRODUCT USED FOR UNKNOWN INDICATION
     Route: 065
  3. EBIXA [Concomitant]
     Active Substance: MEMANTINE HYDROCHLORIDE
     Indication: PRODUCT USED FOR UNKNOWN INDICATION
     Dosage: 20 OT, UNK
     Route: 065
  4. STALEVO [Suspect]
     Active Substance: CARBIDOPA\ENTACAPONE\LEVODOPA
     Indication: PARKINSON^S DISEASE
     Dosage: 1 DF (CARBIDOPA 50 MG, ENTACAPONE 200 MG, LEVODOPA 200 MG), QD (IN THE MORNING)
     Route: 048
     Dates: start: 201612, end: 201710
  5. DARDAREN [Concomitant]
     Indication: PRODUCT USED FOR UNKNOWN INDICATION
     Route: 065
  6. BIPERIDEN [Concomitant]
     Active Substance: BIPERIDEN
     Indication: PRODUCT USED FOR UNKNOWN INDICATION
     Route: 065
  7. STALEVO [Suspect]
     Active Substance: CARBIDOPA\ENTACAPONE\LEVODOPA
     Dosage: 1 DF (CARBIDOPA 50 MG, ENTACAPONE 200 MG, LEVODOPA 200 MG), QD (IN THE MORNING)
     Route: 048
     Dates: start: 201710

REACTIONS (11)
  - Dry skin [Recovering/Resolving]
  - Asthenia [Unknown]
  - Skin ulcer [Not Recovered/Not Resolved]
  - Condition aggravated [Unknown]
  - Septic shock [Recovering/Resolving]
  - Dysphagia [Unknown]
  - Muscle atrophy [Unknown]
  - Decreased appetite [Unknown]
  - Urinary tract infection [Recovered/Resolved]
  - Decubitus ulcer [Recovering/Resolving]
  - Mastication disorder [Unknown]

NARRATIVE: CASE EVENT DATE: 201710
